FAERS Safety Report 20594485 (Version 1)
Quarter: 2022Q1

REPORT INFORMATION
  Report Type: Report from Study
  Country: CN (occurrence: CN)
  Receive Date: 20220315
  Receipt Date: 20220315
  Transmission Date: 20220423
  Serious: Yes (Other)
  Sender: FDA-Public Use
  Company Number: CN-JNJFOC-20220322473

PATIENT

DRUGS (2)
  1. INVEGA [Suspect]
     Active Substance: PALIPERIDONE
     Indication: Schizophrenia
     Route: 048
  2. INVEGA [Suspect]
     Active Substance: PALIPERIDONE
     Route: 048

REACTIONS (5)
  - Neuropathy peripheral [Unknown]
  - Akathisia [Unknown]
  - Extrapyramidal disorder [Unknown]
  - Vomiting [Unknown]
  - Drug ineffective [Unknown]
